FAERS Safety Report 4758621-2 (Version None)
Quarter: 2005Q3

REPORT INFORMATION
  Report Type: 
  Country: None (occurrence: None)
  Receive Date: 20050901
  Receipt Date: 20050823
  Transmission Date: 20060218
  Serious: Yes (Other)
  Sender: FDA-Public Use
  Company Number: GB-BRISTOL-MYERS SQUIBB COMPANY-13086228

PATIENT
  Age: 60 Year
  Sex: Male
  Weight: 111 kg

DRUGS (4)
  1. PRAVASTATIN SODIUM [Suspect]
     Indication: PROPHYLAXIS
     Dosage: DOSE INCREASED FROM 20MG DAILY TO 40MG DAILY ON 24-NOV-2004
     Route: 048
     Dates: start: 20040416
  2. BISOPROLOL [Concomitant]
     Indication: MYOCARDIAL INFARCTION
     Route: 048
     Dates: start: 20000425
  3. IMDUR [Concomitant]
     Indication: PAIN
     Route: 048
     Dates: start: 20000621
  4. RAMIPRIL [Concomitant]
     Indication: HYPERTENSION
     Route: 048
     Dates: start: 20020706

REACTIONS (1)
  - GLYCOSYLATED HAEMOGLOBIN INCREASED [None]
